FAERS Safety Report 24119385 (Version 2)
Quarter: 2024Q3

REPORT INFORMATION
  Report Type: Spontaneous
  Country: CN (occurrence: CN)
  Receive Date: 20240722
  Receipt Date: 20240723
  Transmission Date: 20241017
  Serious: Yes (Hospitalization)
  Sender: BAYER
  Company Number: CN-BAYER-2024A104407

PATIENT
  Age: 50 Year
  Sex: Female
  Weight: 64 kg

DRUGS (1)
  1. KERENDIA [Suspect]
     Active Substance: FINERENONE
     Indication: Proteinuria
     Dosage: 10 MG, QD
     Route: 048
     Dates: start: 20240624, end: 20240710

REACTIONS (2)
  - Gastrointestinal disorder [Recovering/Resolving]
  - Blood creatinine increased [None]

NARRATIVE: CASE EVENT DATE: 20240710
